FAERS Safety Report 6606774-3 (Version None)
Quarter: 2010Q1

REPORT INFORMATION
  Report Type: 
  Country: None (occurrence: None)
  Receive Date: 20100226
  Receipt Date: 20090202
  Transmission Date: 20100710
  Serious: Yes (Disabling, Other)
  Sender: FDA-Public Use
  Company Number: US-ALLERGAN-0901400US

PATIENT
  Sex: Female

DRUGS (1)
  1. BOTOX [Suspect]
     Indication: DRUG USE FOR UNKNOWN INDICATION

REACTIONS (9)
  - BLEPHAROSPASM [None]
  - EYE PAIN [None]
  - EYELID PTOSIS [None]
  - HORDEOLUM [None]
  - KERATITIS [None]
  - LACRIMAL DISORDER [None]
  - PHOTOPHOBIA [None]
  - SCLERAL DISORDER [None]
  - ULCERATIVE KERATITIS [None]
